FAERS Safety Report 25306867 (Version 2)
Quarter: 2025Q2

REPORT INFORMATION
  Report Type: Report from Study
  Country: US (occurrence: US)
  Receive Date: 20250513
  Receipt Date: 20250624
  Transmission Date: 20250717
  Serious: No
  Sender: EISAI
  Company Number: US-Eisai-EC-2025-187504

PATIENT
  Age: 68 Year
  Sex: Female

DRUGS (2)
  1. LENVIMA [Suspect]
     Active Substance: LENVATINIB
     Indication: Hepatocellular carcinoma
     Dates: start: 202504, end: 20250424
  2. LENVIMA [Suspect]
     Active Substance: LENVATINIB
     Dates: start: 20250527

REACTIONS (5)
  - Hypertension [Not Recovered/Not Resolved]
  - Joint swelling [Unknown]
  - Headache [Unknown]
  - Heart rate increased [Unknown]
  - Arthralgia [Unknown]

NARRATIVE: CASE EVENT DATE: 20250101
